FAERS Safety Report 7227374-0 (Version None)
Quarter: 2011Q1

REPORT INFORMATION
  Report Type: 
  Country: None (occurrence: None)
  Receive Date: 20110111
  Receipt Date: 20110111
  Transmission Date: 20110831
  Serious: Yes (Hospitalization)
  Sender: FDA-Public Use
  Company Number: None

PATIENT
  Age: 69 Year
  Sex: Male
  Weight: 97.977 kg

DRUGS (1)
  1. ALIMTA [Suspect]
     Indication: NON-SMALL CELL LUNG CANCER
     Dosage: IV
     Route: 042
     Dates: start: 20100901, end: 20101227

REACTIONS (3)
  - BACTERIAL INFECTION [None]
  - NO THERAPEUTIC RESPONSE [None]
  - CELLULITIS [None]
